FAERS Safety Report 8213591-X (Version None)
Quarter: 2012Q1

REPORT INFORMATION
  Report Type: 
  Country: None (occurrence: None)
  Receive Date: 20120315
  Receipt Date: 20120306
  Transmission Date: 20120608
  Serious: Yes (Other)
  Sender: FDA-Public Use
  Company Number: US-ASTRAZENECA-2009UW08490

PATIENT
  Age: 84 Year
  Sex: Male
  Weight: 108.9 kg

DRUGS (8)
  1. CARAFATE [Concomitant]
  2. NEXIUM [Suspect]
     Route: 048
  3. ZOLADEX [Concomitant]
     Indication: PROSTATE CANCER
     Dosage: SHOTS EVERY THREE MONTHS
  4. PRILOSEC [Suspect]
     Indication: BARRETT'S OESOPHAGUS
     Route: 048
  5. CASODEX [Concomitant]
     Indication: PROSTATE CANCER
     Dosage: DAILY
  6. ASPIRIN [Concomitant]
  7. HIGH BLOOD PRESSURE MEDICATION [Concomitant]
  8. NEXIUM [Suspect]
     Indication: BARRETT'S OESOPHAGUS
     Route: 048

REACTIONS (9)
  - DRUG INEFFECTIVE FOR UNAPPROVED INDICATION [None]
  - INCORRECT DRUG ADMINISTRATION DURATION [None]
  - DRUG INEFFECTIVE [None]
  - BARRETT'S OESOPHAGUS [None]
  - OESOPHAGEAL CARCINOMA [None]
  - PROSTATE CANCER [None]
  - OESOPHAGITIS [None]
  - OFF LABEL USE [None]
  - INAPPROPRIATE SCHEDULE OF DRUG ADMINISTRATION [None]
